FAERS Safety Report 20291229 (Version 1)
Quarter: 2022Q1

REPORT INFORMATION
  Report Type: Spontaneous
  Country: US (occurrence: None)
  Receive Date: 20220103
  Receipt Date: 20220103
  Transmission Date: 20220423
  Serious: Yes (Other)
  Sender: FDA-Public Use
  Company Number: None

PATIENT
  Age: 50 Year
  Sex: Male
  Weight: 69.75 kg

DRUGS (10)
  1. AZITHROMYCIN [Suspect]
     Active Substance: AZITHROMYCIN
     Indication: COVID-19
     Dosage: OTHER QUANTITY : 1 TABLET(S);?FREQUENCY : DAILY;?
     Route: 048
     Dates: start: 20211230
  2. BUDESONIDE [Concomitant]
     Active Substance: BUDESONIDE
  3. ZINC [Concomitant]
     Active Substance: ZINC
  4. GUMMY [Concomitant]
  5. BABY ASPIRIN  MG [Concomitant]
  6. QUERCETIN [Concomitant]
     Active Substance: QUERCETIN
  7. VITAMIN C [Concomitant]
     Active Substance: ASCORBIC ACID
  8. FAMOTIDINE [Concomitant]
     Active Substance: FAMOTIDINE
  9. CLARITIN [Concomitant]
     Active Substance: LORATADINE
  10. FENOFIBRATE [Concomitant]
     Active Substance: FENOFIBRATE

REACTIONS (3)
  - Nausea [None]
  - Vomiting [None]
  - Dizziness [None]

NARRATIVE: CASE EVENT DATE: 20220101
